FAERS Safety Report 8375364 (Version 10)
Quarter: 2012Q4

REPORT INFORMATION
  Report Type: Report from Study
  Country: PL (occurrence: PL)
  Receive Date: 20120131
  Receipt Date: 20120831
  Transmission Date: 20130627
  Serious: Yes (Death, Life-Threatening, Hospitalization)
  Sender: FDA-Public Use
  Company Number: PL-NOVOPROD-343565

PATIENT
  Age: 65 Year
  Sex: Male
  Weight: 95 kg

DRUGS (10)
  1. LIRAGLUTIDE FLEXPEN [Suspect]
     Indication: TYPE 2 DIABETES MELLITUS
     Dosage: 0.6 mg, qd
     Route: 058
     Dates: start: 20110308, end: 20110411
  2. LIRAGLUTIDE FLEXPEN [Suspect]
     Dosage: 1.2 mg, qd
     Route: 058
     Dates: start: 20110412, end: 20110418
  3. LIRAGLUTIDE FLEXPEN [Suspect]
     Dosage: 1.8 mg, qd
     Route: 058
     Dates: start: 20110419, end: 20120203
  4. FORMOTEROL [Concomitant]
     Indication: CHRONIC OBSTRUCTIVE PULMONARY DISEASE
     Dosage: 24 ?g, qd
     Dates: start: 20111220
  5. THEOPHYLLIN [Concomitant]
     Indication: CHRONIC OBSTRUCTIVE PULMONARY DISEASE
     Dosage: 300 mg, qd
     Dates: start: 20111220
  6. TIOTROPIUM [Concomitant]
     Indication: CHRONIC OBSTRUCTIVE PULMONARY DISEASE
     Dosage: 18 ?g, qd
     Dates: start: 20111220
  7. FLUTICASONE [Concomitant]
     Indication: CHRONIC OBSTRUCTIVE PULMONARY DISEASE
     Dosage: 1000 ?g, qid
     Dates: start: 20111220, end: 20120108
  8. DICLOFENAC [Concomitant]
     Indication: LUNG ADENOCARCINOMA
     Dosage: 75 mg, qd
     Dates: start: 20111220
  9. BUDESONIDE [Concomitant]
     Indication: CHRONIC OBSTRUCTIVE PULMONARY DISEASE
     Dosage: 800 ?g, qd
     Dates: start: 20120109
  10. ONDANSETRON [Concomitant]
     Indication: PROPHYLAXIS
     Dosage: 16 mg, qd
     Dates: start: 20120111

REACTIONS (1)
  - Lung adenocarcinoma [Fatal]
